FAERS Safety Report 7130179-2 (Version None)
Quarter: 2010Q4

REPORT INFORMATION
  Report Type: 
  Country: None (occurrence: None)
  Receive Date: 20101116
  Receipt Date: 20101101
  Transmission Date: 20110411
  Serious: Yes (Hospitalization, Other)
  Sender: FDA-Public Use
  Company Number: 2010AP002245

PATIENT
  Age: 85 Year
  Sex: Female

DRUGS (5)
  1. HYDROCHLOROTHIAZIDE [Suspect]
  2. TAMOXIFEN CITRATE [Concomitant]
  3. DIGOXIN [Concomitant]
  4. INSULIN (INSULIN) [Concomitant]
  5. AMLORIDE (AMILORIDE) [Concomitant]

REACTIONS (3)
  - BLOOD ALBUMIN ABNORMAL [None]
  - DELIRIUM [None]
  - HYPERCALCAEMIA [None]
